FAERS Safety Report 9743279 (Version 2)
Quarter: 2013Q4

REPORT INFORMATION
  Report Type: Spontaneous
  Country: US (occurrence: US)
  Receive Date: 20131210
  Receipt Date: 20131210
  Transmission Date: 20140711
  Serious: No
  Sender: FDA-Public Use
  Company Number: US-GILEAD-2009-0025013

PATIENT
  Sex: Female

DRUGS (21)
  1. LETAIRIS [Suspect]
     Indication: PULMONARY ARTERIAL HYPERTENSION
     Route: 048
     Dates: start: 20091009
  2. REVATIO [Concomitant]
  3. COREG [Concomitant]
  4. LISINOPRIL [Concomitant]
  5. TOPAMAX [Concomitant]
  6. FROVA [Concomitant]
  7. RITALIN [Concomitant]
  8. BUSPIRONE HCL [Concomitant]
  9. COGENTIN [Concomitant]
  10. SKELAXIN [Concomitant]
  11. LORTAB [Concomitant]
  12. CELEBREX [Concomitant]
  13. FLONASE [Concomitant]
  14. METFORMIN HCL [Concomitant]
  15. PROTONIX [Concomitant]
  16. PHENERGAN [Concomitant]
  17. SEROQUEL [Concomitant]
  18. TRAZODONE [Concomitant]
  19. LEXAPRO [Concomitant]
  20. COLCHICINE [Concomitant]
  21. FE-TINIC [Concomitant]

REACTIONS (2)
  - Pain in extremity [Unknown]
  - Headache [Unknown]
